FAERS Safety Report 7306510-1 (Version None)
Quarter: 2011Q1

REPORT INFORMATION
  Report Type: 
  Country: None (occurrence: None)
  Receive Date: 20110208
  Receipt Date: 20110124
  Transmission Date: 20110831
  Serious: No
  Sender: FDA-Public Use
  Company Number: M1100386

PATIENT
  Age: 65 Year
  Sex: Female
  Weight: 91.6266 kg

DRUGS (20)
  1. POTASSIUM CHLORIDE [Suspect]
     Indication: BLOOD POTASSIUM DECREASED
     Dosage: 2 IN 1 D, ORAL
     Route: 048
     Dates: start: 20090101
  2. CALCIUM (CALCIUM) [Concomitant]
  3. FISH OIL (FISH OIL) [Concomitant]
  4. GLUCOSAMINE (GLUCOSAMINE) [Concomitant]
  5. PROBIOTIC [Concomitant]
  6. CARAFATE [Concomitant]
  7. MEDROL [Concomitant]
  8. COZAAR [Concomitant]
  9. ASPIRIN [Concomitant]
  10. MS CONTIN [Concomitant]
  11. MAXZIDE [Concomitant]
  12. PREVACID [Concomitant]
  13. MULTIVITAMIN [Concomitant]
  14. BETIMOL (TIMOLOL) [Concomitant]
  15. ARTIFICIAL TEARS (HYPEROMELLOSE) [Concomitant]
  16. EVISTA [Concomitant]
  17. CHERRY FLEX [Concomitant]
  18. XANAX [Concomitant]
  19. VITAMIN D [Concomitant]
  20. MAGNESIUM (MAGNESIUM) [Concomitant]

REACTIONS (7)
  - BLOOD POTASSIUM DECREASED [None]
  - CHEST DISCOMFORT [None]
  - PARAESTHESIA [None]
  - MUSCLE TIGHTNESS [None]
  - HYPOAESTHESIA [None]
  - NAUSEA [None]
  - HEART RATE IRREGULAR [None]
